FAERS Safety Report 7401558-0 (Version None)
Quarter: 2011Q2

REPORT INFORMATION
  Report Type: 
  Country: None (occurrence: None)
  Receive Date: 20110408
  Receipt Date: 20110330
  Transmission Date: 20111010
  Serious: Yes (Other)
  Sender: FDA-Public Use
  Company Number: US-BIOGENIDEC-2010BI025293

PATIENT
  Age: 44 Year
  Sex: Female

DRUGS (9)
  1. LORAZEPAM [Concomitant]
     Indication: GRAND MAL CONVULSION
  2. TOPAMAX [Concomitant]
     Indication: PETIT MAL EPILEPSY
  3. AVONEX [Suspect]
     Indication: MULTIPLE SCLEROSIS
     Route: 030
     Dates: start: 20100715
  4. KEPPRA [Concomitant]
     Indication: GRAND MAL CONVULSION
  5. MEDICATION NOS [Concomitant]
     Indication: PETIT MAL EPILEPSY
  6. LORAZEPAM [Concomitant]
     Indication: PETIT MAL EPILEPSY
  7. TOPAMAX [Concomitant]
     Indication: GRAND MAL CONVULSION
  8. KEPPRA [Concomitant]
     Indication: PETIT MAL EPILEPSY
  9. MEDICATION NOS [Concomitant]
     Indication: GRAND MAL CONVULSION

REACTIONS (1)
  - PETIT MAL EPILEPSY [None]
